FAERS Safety Report 7489310-1 (Version None)
Quarter: 2011Q2

REPORT INFORMATION
  Report Type: 
  Country: None (occurrence: None)
  Receive Date: 20110518
  Receipt Date: 20110511
  Transmission Date: 20111010
  Serious: Yes (Hospitalization)
  Sender: FDA-Public Use
  Company Number: FR-SANOFI-AVENTIS-2011SA030161

PATIENT
  Age: 70 Year
  Sex: Male

DRUGS (11)
  1. SUFENTA PRESERVATIVE FREE [Concomitant]
     Route: 051
  2. PIPERACILLIN AND TAZOBACTAM [Concomitant]
     Route: 051
  3. LOVENOX [Suspect]
     Route: 058
     Dates: start: 20101014, end: 20101014
  4. BRICANYL [Concomitant]
     Route: 065
  5. ATROVENT [Concomitant]
     Route: 065
  6. NIMBEX [Concomitant]
     Route: 051
  7. EUPRESSYL [Concomitant]
     Route: 065
  8. INSULIN [Concomitant]
     Route: 051
  9. OMEPRAZOLE [Concomitant]
     Route: 065
  10. HEPARIN [Suspect]
     Route: 042
     Dates: start: 20101016, end: 20101024
  11. DIPRIVAN [Concomitant]
     Route: 051

REACTIONS (2)
  - LIVEDO RETICULARIS [None]
  - HEPARIN-INDUCED THROMBOCYTOPENIA [None]
